FAERS Safety Report 4772520-1 (Version None)
Quarter: 2005Q3

REPORT INFORMATION
  Report Type: 
  Country: None (occurrence: None)
  Receive Date: 20050916
  Receipt Date: 20050916
  Transmission Date: 20060218
  Serious: Yes (Other)
  Sender: FDA-Public Use
  Company Number: None

PATIENT
  Age: 45 Year
  Sex: Female
  Weight: 70.3075 kg

DRUGS (1)
  1. FAMVIR [Suspect]
     Indication: HERPES VIRUS INFECTION
     Dosage: 1 X A DAY FOR 6-7 YRS

REACTIONS (7)
  - ANXIETY [None]
  - DYSPNOEA [None]
  - FEAR [None]
  - MALAISE [None]
  - SKIN DISORDER [None]
  - SKIN LESION [None]
  - SPINAL DISORDER [None]
